FAERS Safety Report 4457499-4 (Version None)
Quarter: 2004Q3

REPORT INFORMATION
  Report Type: 
  Country: None (occurrence: None)
  Receive Date: 20040922
  Receipt Date: 20040910
  Transmission Date: 20050211
  Serious: Yes (Hospitalization)
  Sender: FDA-Public Use
  Company Number: 04P-163-0272939-00

PATIENT
  Age: 68 Year
  Sex: Female
  Weight: 54.4316 kg

DRUGS (7)
  1. HUMIRA [Suspect]
     Indication: RHEUMATOID ARTHRITIS
     Dosage: 40 MG, 1 IN 2 WK, SUBCUTANEOUS
     Route: 058
     Dates: start: 20040501
  2. VENLAFAXINE HCL [Concomitant]
  3. VOLTAREN [Concomitant]
  4. CALCIUM [Concomitant]
  5. HYDROCODONE [Concomitant]
  6. SULFASALAZINE [Concomitant]
  7. NEBULIZER [Concomitant]

REACTIONS (5)
  - DECREASED APPETITE [None]
  - FALL [None]
  - INJECTION SITE DISCOLOURATION [None]
  - NAUSEA [None]
  - WEIGHT DECREASED [None]
